FAERS Safety Report 8416081-4 (Version None)
Quarter: 2012Q2

REPORT INFORMATION
  Report Type: 
  Country: None (occurrence: None)
  Receive Date: 20120606
  Receipt Date: 20120522
  Transmission Date: 20120825
  Serious: Yes (Death, Other)
  Sender: FDA-Public Use
  Company Number: US-ROCHE-1072007

PATIENT

DRUGS (4)
  1. TARCEVA [Suspect]
     Indication: GLIOBLASTOMA
     Dosage: 150-200MG DAILY OR 500-600MG DAILY FOR PATIONS ON ENZYME-INDUCING ANTIEPILEPTIC DRUGS
     Route: 065
  2. TEMOZOLOMIDE [Suspect]
     Indication: GLIOBLASTOMA
     Dosage: AFTER RADIOTHERAPY, 5 DAY PER 28 DAY CYCLE
     Route: 065
  3. AVASTIN [Suspect]
     Indication: GLIOBLASTOMA
     Route: 065
  4. TEMOZOLOMIDE [Suspect]

REACTIONS (7)
  - DIARRHOEA [None]
  - WEIGHT DECREASED [None]
  - LYMPHOPENIA [None]
  - FATIGUE [None]
  - ASPERGILLOSIS [None]
  - THROMBOCYTOPENIA [None]
  - NEUTROPENIA [None]
